FAERS Safety Report 9167889 (Version 1)
Quarter: 2013Q1

REPORT INFORMATION
  Report Type: Spontaneous
  Country: GB (occurrence: None)
  Receive Date: 20130307
  Receipt Date: 20130307
  Transmission Date: 20140127
  Serious: Yes (Other)
  Sender: FDA-Public Use
  Company Number: 2013-02953

PATIENT
  Age: 20 Year
  Sex: Female

DRUGS (3)
  1. SERTRALINE HYDROCHLORIDE (UNKNOWN) (SERTRALINE HYDROCHLORIDE) UNK [Suspect]
     Indication: DEPRESSION
     Route: 048
  2. SERTRALINE HYDROCHLORIDE (UNKNOWN) (SERTRALINE HYDROCHLORIDE) UNK [Suspect]
     Indication: BIPOLAR DISORDER
     Route: 048
  3. ABILIFY (ARIPIPRAZOLE) [Suspect]

REACTIONS (3)
  - Abortion spontaneous [None]
  - Pregnancy [None]
  - Maternal drugs affecting foetus [None]
